FAERS Safety Report 7626440-5 (Version None)
Quarter: 2011Q3

REPORT INFORMATION
  Report Type: 
  Country: None (occurrence: None)
  Receive Date: 20110721
  Receipt Date: 20110406
  Transmission Date: 20111222
  Serious: No
  Sender: FDA-Public Use
  Company Number: US-NOVEN-11US002212

PATIENT
  Sex: Female

DRUGS (2)
  1. FENTANYL [Suspect]
     Indication: HEADACHE
     Dosage: UNK
     Route: 062
     Dates: start: 20110301
  2. FENTANYL [Suspect]
     Indication: BRAIN NEOPLASM

REACTIONS (3)
  - INADEQUATE ANALGESIA [None]
  - DRUG ADMINISTRATION ERROR [None]
  - PRODUCT QUALITY ISSUE [None]
